FAERS Safety Report 7572947-9 (Version None)
Quarter: 2011Q2

REPORT INFORMATION
  Report Type: 
  Country: None (occurrence: None)
  Receive Date: 20110525
  Receipt Date: 20110127
  Transmission Date: 20111010
  Serious: Yes (Hospitalization)
  Sender: FDA-Public Use
  Company Number: 322345

PATIENT
  Sex: Male

DRUGS (3)
  1. VICTOZA [Suspect]
     Indication: TYPE 2 DIABETES MELLITUS
     Dosage: SUBCUTANEOUS
     Route: 058
     Dates: end: 20110101
  2. ACTOS [Concomitant]
  3. METFORMIN HCL [Concomitant]

REACTIONS (1)
  - PANCREATITIS [None]
